FAERS Safety Report 4727593-9 (Version None)
Quarter: 2005Q3

REPORT INFORMATION
  Report Type: 
  Country: None (occurrence: None)
  Receive Date: 20050727
  Receipt Date: 20050727
  Transmission Date: 20060218
  Serious: Yes (Hospitalization)
  Sender: FDA-Public Use
  Company Number: None

PATIENT
  Age: 82 Year
  Sex: Male

DRUGS (12)
  1. CHLORASEPTIC SPRAY   PHENO SPRAY [Suspect]
     Dosage: 2 SPRAYS PO   Q1H PM
     Route: 048
     Dates: start: 20050513, end: 20050515
  2. FENTANYL [Suspect]
     Dosage: 4ML EPIDURAL   CONT INFUSION
     Dates: start: 20050513, end: 20050515
  3. BUPIVACAINE [Suspect]
     Dosage: 4ML EPIDURAL    CONT INFUSION
     Dates: start: 20050513, end: 20050515
  4. ACETAMINOPHEN [Concomitant]
  5. ASPIRIN [Concomitant]
  6. CHLORHEXIDINE GLUCONATE [Concomitant]
  7. FENTANYL CITRATE INJ, SOLN [Concomitant]
  8. FOSINOPRIL SODIUM [Concomitant]
  9. LEVOTHYROXINE SODIUM [Concomitant]
  10. METHYLCELLULOSE [Concomitant]
  11. PROPAFENONE HCL [Concomitant]
  12. SIMVASTATIN [Concomitant]

REACTIONS (2)
  - HYPOAESTHESIA ORAL [None]
  - SWOLLEN TONGUE [None]
